FAERS Safety Report 6366216-2 (Version None)
Quarter: 2009Q3

REPORT INFORMATION
  Report Type: 
  Country: None (occurrence: None)
  Receive Date: 20090915
  Receipt Date: 20090903
  Transmission Date: 20100115
  Serious: Yes (Hospitalization, Disabling)
  Sender: FDA-Public Use
  Company Number: TPG2009A00854

PATIENT
  Age: 61 Year
  Sex: Female

DRUGS (6)
  1. PIOGLITAZONE HCL [Suspect]
     Indication: HYPERGLYCAEMIA
     Dosage: PIOGLITAZONE 30 MG/1700 MG METFORMIN PER ORAL
     Route: 048
     Dates: start: 20090609, end: 20090619
  2. PIOGLITAZONE HCL [Suspect]
     Indication: TYPE 2 DIABETES MELLITUS
     Dosage: PIOGLITAZONE 30 MG/1700 MG METFORMIN PER ORAL
     Route: 048
     Dates: start: 20090609, end: 20090619
  3. MARCUMAR [Concomitant]
  4. FUROSEMIDE [Concomitant]
  5. LISINOPRIL [Concomitant]
  6. INEGY (SIMVASTATIN, EZETIMIBE) [Concomitant]

REACTIONS (13)
  - ABDOMINAL DISCOMFORT [None]
  - CHILLS [None]
  - DIZZINESS [None]
  - FALL [None]
  - HAND FRACTURE [None]
  - HEAD INJURY [None]
  - HEADACHE [None]
  - HYPOGLYCAEMIA [None]
  - LOSS OF CONSCIOUSNESS [None]
  - NAUSEA [None]
  - PERIORBITAL HAEMATOMA [None]
  - TEMPERATURE REGULATION DISORDER [None]
  - TENDON RUPTURE [None]
